FAERS Safety Report 7491496-X (Version None)
Quarter: 2011Q2

REPORT INFORMATION
  Report Type: 
  Country: None (occurrence: None)
  Receive Date: 20110519
  Receipt Date: 20110513
  Transmission Date: 20111010
  Serious: Yes (Death, Hospitalization)
  Sender: FDA-Public Use
  Company Number: PHHY2011JP34486

PATIENT
  Age: 72 Year
  Sex: Male

DRUGS (4)
  1. VOLTAREN [Suspect]
     Indication: BACK PAIN
     Dosage: UNK
     Route: 054
     Dates: start: 20050410
  2. PENTAZOCINE LACTATE [Concomitant]
     Indication: PAIN
     Dosage: UNK
     Route: 030
     Dates: start: 20050409, end: 20050409
  3. LENDORMIN [Concomitant]
     Dosage: UNK
     Dates: start: 20050410
  4. PENTAZOCINE LACTATE [Concomitant]
     Dosage: UNK
     Route: 030
     Dates: start: 20050410

REACTIONS (11)
  - TRACHEAL OBSTRUCTION [None]
  - BACK PAIN [None]
  - DIZZINESS [None]
  - SHOCK HAEMORRHAGIC [None]
  - VOMITING [None]
  - CARDIO-RESPIRATORY ARREST [None]
  - HYPOTENSION [None]
  - HAEMATOMA [None]
  - ASPHYXIA [None]
  - ARTERIAL INJURY [None]
  - ABNORMAL BEHAVIOUR [None]
